FAERS Safety Report 6716512-1 (Version None)
Quarter: 2010Q2

REPORT INFORMATION
  Report Type: 
  Country: None (occurrence: None)
  Receive Date: 20100507
  Receipt Date: 20100504
  Transmission Date: 20101027
  Serious: Yes (Life-Threatening, Hospitalization, Disabling, Other)
  Sender: FDA-Public Use
  Company Number: US-CELGENEUS-163-21880-10041105

PATIENT
  Sex: Male

DRUGS (2)
  1. REVLIMID [Suspect]
     Indication: MULTIPLE MYELOMA
     Route: 048
     Dates: start: 20100201, end: 20100101
  2. REVLIMID [Suspect]
     Route: 048
     Dates: start: 20091201, end: 20100101

REACTIONS (7)
  - ATRIAL FIBRILLATION [None]
  - DEHYDRATION [None]
  - NAUSEA [None]
  - PANCYTOPENIA [None]
  - RENAL FAILURE [None]
  - SICK SINUS SYNDROME [None]
  - VOMITING [None]
